FAERS Safety Report 9240480 (Version 1)
Quarter: 2013Q1

REPORT INFORMATION
  Report Type: Spontaneous
  Country: US (occurrence: None)
  Receive Date: 20121120
  Receipt Date: 20121120
  Transmission Date: 20140127
  Serious: No
  Sender: FDA-Public Use
  Company Number: 1000037837

PATIENT
  Age: 69 Year
  Sex: Male

DRUGS (8)
  1. VIIBRYD [Suspect]
     Indication: DEPRESSION
     Route: 048
     Dates: start: 20120809, end: 20120814
  2. JANUMET (RISTFOR) (RISTFOR) [Concomitant]
  3. AMARYL (GLIMEPIRIDE) (GLIMEPIRIDE) [Concomitant]
  4. LOSARTAN (LOSARTAN) (LOSARTAN) [Concomitant]
  5. FISH OIL (FISH OIL) (FISH OIL) [Concomitant]
  6. SAW PALMETTO (SAW PALMETTO) (SAW PALMETTO) [Concomitant]
  7. MVI (VITAMINS NOS) (VITAMINS NOS) [Concomitant]
  8. BABY ASPIRIN (ACETYLSALICYLIC ACID) (81 MILLIGRAM) (ACETYLSALICYLIC ACID) [Concomitant]

REACTIONS (6)
  - Fatigue [None]
  - Feeling cold [None]
  - Hypoaesthesia [None]
  - Feeling abnormal [None]
  - Asthenia [None]
  - Insomnia [None]
